FAERS Safety Report 10381777 (Version 1)
Quarter: 2014Q3

REPORT INFORMATION
  Report Type: Spontaneous
  Country: US (occurrence: US)
  Receive Date: 20140813
  Receipt Date: 20140813
  Transmission Date: 20150326
  Serious: No
  Sender: FDA-Public Use
  Company Number: US-ASTRAZENECA-2014SE56509

PATIENT
  Age: 78 Year
  Sex: Male

DRUGS (1)
  1. ZESTRIL [Suspect]
     Active Substance: LISINOPRIL
     Route: 048
     Dates: start: 2013

REACTIONS (2)
  - Skin odour abnormal [Unknown]
  - Intentional product misuse [Unknown]
